FAERS Safety Report 9703375 (Version 24)
Quarter: 2020Q1

REPORT INFORMATION
  Report Type: Report from Study
  Country: CA (occurrence: CA)
  Receive Date: 20131122
  Receipt Date: 20200220
  Transmission Date: 20200409
  Serious: Yes (Hospitalization, Other)
  Sender: FDA-Public Use
  Company Number: PHHY2013CA011029

PATIENT
  Age: 49 Year
  Sex: Male
  Weight: 100.68 kg

DRUGS (3)
  1. SANDOSTATIN [Suspect]
     Active Substance: OCTREOTIDE ACETATE
     Indication: NEUROENDOCRINE TUMOUR
     Dosage: UNK, QD
     Route: 058
     Dates: start: 20130114, end: 20130114
  2. SANDOSTATIN LAR DEPOT [Suspect]
     Active Substance: OCTREOTIDE ACETATE
     Indication: CARCINOID TUMOUR
     Dosage: 60 MG, QMO (EVERY 4 WEEKS)
     Route: 030
     Dates: start: 2019
  3. SANDOSTATIN LAR DEPOT [Suspect]
     Active Substance: OCTREOTIDE ACETATE
     Indication: NEUROENDOCRINE TUMOUR
     Dosage: 30 MG, QMO/EVERY 30 DAYS
     Route: 030
     Dates: start: 20130131, end: 20141008

REACTIONS (12)
  - Blood pressure increased [Unknown]
  - Body temperature increased [Unknown]
  - Blood glucose increased [Unknown]
  - Hepatic lesion [Unknown]
  - Skin lesion [Unknown]
  - Lethargy [Unknown]
  - Weight decreased [Unknown]
  - Depression [Unknown]
  - Fatigue [Unknown]
  - Drug ineffective [Unknown]
  - Gait disturbance [Unknown]
  - Asthenia [Unknown]

NARRATIVE: CASE EVENT DATE: 20131101
